FAERS Safety Report 24451844 (Version 1)
Quarter: 2024Q4

REPORT INFORMATION
  Report Type: Spontaneous
  Country: US (occurrence: US)
  Receive Date: 20241017
  Receipt Date: 20241017
  Transmission Date: 20250115
  Serious: No
  Sender: GALDERMA
  Company Number: US-GALDERMA-US2024013951

PATIENT

DRUGS (3)
  1. PROACTIV MD ADAPALENE ACNE TREATMENT [Suspect]
     Active Substance: ADAPALENE
     Indication: Acne
     Dosage: 1 DOSAGE FORM, PEA SIZE, EVERY NIGHT ON FACE
     Route: 061
     Dates: start: 202208, end: 202409
  2. Proactiv MD Ultra Gentle Cleanser [Concomitant]
     Indication: Acne
     Dosage: 1 DOSAGE FORM, 2 PEA SIZE ON FACE
     Route: 061
     Dates: start: 202208, end: 202409
  3. COSMETICS [Concomitant]
     Active Substance: COSMETICS
     Indication: Acne
     Dosage: 1 DOSAGE FORM, LIKE A PEA SIZE ON FACE, WHENEVER HE NEEDED IT
     Route: 061
     Dates: start: 202208, end: 202409

REACTIONS (1)
  - Drug ineffective [Unknown]
